FAERS Safety Report 9351322 (Version 1)
Quarter: 2013Q2

REPORT INFORMATION
  Report Type: Spontaneous
  Country: GB (occurrence: GB)
  Receive Date: 20130617
  Receipt Date: 20130617
  Transmission Date: 20140414
  Serious: Yes (Hospitalization)
  Sender: FDA-Public Use
  Company Number: PHHY2013GB059815

PATIENT
  Age: 38 Year
  Sex: Female
  Weight: 94 kg

DRUGS (6)
  1. EPIRUBICIN [Suspect]
     Route: 042
     Dates: start: 20130525, end: 20130525
  2. 5-FLUOROURACIL [Suspect]
     Indication: BREAST CANCER
     Route: 042
     Dates: start: 20130525, end: 20130525
  3. CYCLOPHOSPHAMIDE [Suspect]
     Indication: BREAST CANCER
     Route: 042
     Dates: start: 20130525, end: 20130525
  4. ONDANSETRON [Concomitant]
  5. DEXAMETHASONE [Concomitant]
  6. METOCLOPRAMIDE [Concomitant]

REACTIONS (1)
  - Neutropenic sepsis [Recovering/Resolving]
